FAERS Safety Report 13161936 (Version 2)
Quarter: 2017Q2

REPORT INFORMATION
  Report Type: Spontaneous
  Country: US (occurrence: US)
  Receive Date: 20170130
  Receipt Date: 20170426
  Transmission Date: 20170830
  Serious: No
  Sender: FDA-Public Use
  Company Number: US-AUROBINDO-AUR-APU-2017-00163

PATIENT
  Age: 41 Year
  Sex: Female
  Weight: 54.42 kg

DRUGS (5)
  1. FLECAINIDE ACETATE TABLETS USP 50MG [Suspect]
     Active Substance: FLECAINIDE ACETATE
     Indication: SUPRAVENTRICULAR EXTRASYSTOLES
     Dosage: 1 TABLET TWICE DAILY
     Route: 065
     Dates: start: 20161015, end: 20161231
  2. FLECAINIDE ACETATE TABLETS USP 50MG [Suspect]
     Active Substance: FLECAINIDE ACETATE
     Indication: VENTRICULAR EXTRASYSTOLES
  3. ESCITALOPRAM [Concomitant]
     Active Substance: ESCITALOPRAM OXALATE
     Indication: PRODUCT USED FOR UNKNOWN INDICATION
     Route: 065
  4. CARDIZEM [Concomitant]
     Active Substance: DILTIAZEM HYDROCHLORIDE
     Indication: PRODUCT USED FOR UNKNOWN INDICATION
     Route: 065
  5. FLECAINIDE ACETATE TABLETS USP 50MG [Suspect]
     Active Substance: FLECAINIDE ACETATE
     Indication: ARRHYTHMIA

REACTIONS (12)
  - Anxiety [Recovering/Resolving]
  - Vision blurred [Recovering/Resolving]
  - Fatigue [Recovering/Resolving]
  - Social avoidant behaviour [Recovering/Resolving]
  - Memory impairment [Recovering/Resolving]
  - Emotional disorder [Recovering/Resolving]
  - Depression [Recovering/Resolving]
  - Nightmare [Recovering/Resolving]
  - Disturbance in attention [Recovering/Resolving]
  - Anger [Recovering/Resolving]
  - Confusional state [Recovering/Resolving]
  - Frustration tolerance decreased [Recovering/Resolving]

NARRATIVE: CASE EVENT DATE: 201611
